FAERS Safety Report 16348551 (Version 3)
Quarter: 2019Q3

REPORT INFORMATION
  Report Type: Spontaneous
  Country: DE (occurrence: DE)
  Receive Date: 20190523
  Receipt Date: 20190716
  Transmission Date: 20191004
  Serious: Yes (Hospitalization)
  Sender: FDA-Public Use
  Company Number: PHHY2019DE114758

PATIENT
  Age: 54 Year
  Sex: Female
  Weight: 66 kg

DRUGS (9)
  1. TASIGNA [Suspect]
     Active Substance: NILOTINIB
     Dosage: 300 MG, BID
     Route: 048
     Dates: start: 201905
  2. PANTOZOL [Concomitant]
     Active Substance: PANTOPRAZOLE SODIUM
     Indication: GASTRITIS
     Dosage: UNK (INTERMITTENTLY)
     Route: 065
  3. DEXAMETHASONE. [Concomitant]
     Active Substance: DEXAMETHASONE
     Indication: PRODUCT USED FOR UNKNOWN INDICATION
     Dosage: 8 MG, QD
     Route: 065
     Dates: end: 20190524
  4. METFORMIN [Concomitant]
     Active Substance: METFORMIN HYDROCHLORIDE
     Indication: TYPE 2 DIABETES MELLITUS
     Dosage: 500 MG, BID
     Route: 048
     Dates: start: 2015
  5. SEVIKAR [Concomitant]
     Active Substance: AMLODIPINE BESYLATE\OLMESARTAN MEDOXOMIL
     Indication: PRODUCT USED FOR UNKNOWN INDICATION
     Dosage: 20/5 MG, QD (IN THE MORNING)
     Route: 048
  6. SIMVASTATIN. [Concomitant]
     Active Substance: SIMVASTATIN
     Indication: LIPID METABOLISM DISORDER
     Dosage: 20 MG, QD
     Route: 048
     Dates: start: 2015
  7. IBUPROFEN. [Concomitant]
     Active Substance: IBUPROFEN
     Indication: PRODUCT USED FOR UNKNOWN INDICATION
     Dosage: UNK
     Route: 065
  8. TASIGNA [Suspect]
     Active Substance: NILOTINIB
     Indication: CHRONIC MYELOID LEUKAEMIA
     Dosage: 300 MG, BID
     Route: 048
     Dates: start: 201809, end: 20190517
  9. BISOPROLOL [Concomitant]
     Active Substance: BISOPROLOL
     Indication: HYPERTENSION
     Dosage: 5 MG, QD  (IN THE MORNING)
     Route: 065

REACTIONS (11)
  - Gastric cancer [Unknown]
  - Haemangioma [Unknown]
  - Metastases to lymph nodes [Unknown]
  - Nausea [Unknown]
  - Hepatic cyst [Unknown]
  - Second primary malignancy [Unknown]
  - Breast cancer [Unknown]
  - General physical health deterioration [Unknown]
  - Dehydration [Recovering/Resolving]
  - Lymphadenopathy [Unknown]
  - Leukocyturia [Unknown]

NARRATIVE: CASE EVENT DATE: 201901
